FAERS Safety Report 16016029 (Version 1)
Quarter: 2019Q1

REPORT INFORMATION
  Report Type: Spontaneous
  Country: DE (occurrence: DE)
  Receive Date: 20190228
  Receipt Date: 20190228
  Transmission Date: 20190418
  Serious: Yes (Other)
  Sender: FDA-Public Use
  Company Number: DE-ABBVIE-19S-062-2682477-00

PATIENT
  Sex: Male
  Weight: 70 kg

DRUGS (5)
  1. KREON [Suspect]
     Active Substance: PANCRELIPASE
     Dosage: (UNK DOSE (12 TO 15 HOURS, AFTER MEALS),
     Route: 048
     Dates: start: 20180626, end: 20180630
  2. KREON [Suspect]
     Active Substance: PANCRELIPASE
     Dosage: (UNK DOSE (12 TO 15 HOURS, AFTER MEALS),
     Route: 048
     Dates: start: 20180707, end: 20180708
  3. GEMCITABINE [Concomitant]
     Active Substance: GEMCITABINE\GEMCITABINE HYDROCHLORIDE
     Indication: PRODUCT USED FOR UNKNOWN INDICATION
     Dates: start: 20180628
  4. CAPECITABINE. [Concomitant]
     Active Substance: CAPECITABINE
     Indication: PRODUCT USED FOR UNKNOWN INDICATION
     Dates: end: 20180614
  5. KREON [Suspect]
     Active Substance: PANCRELIPASE
     Indication: PANCREATIC ENZYME REPLACEMENT THERAPY
     Dosage: (UNK DOSE (12 TO 15 HOURS, AFTER MEALS),
     Route: 048
     Dates: start: 20180621, end: 20180626

REACTIONS (6)
  - Diarrhoea [Not Recovered/Not Resolved]
  - Abnormal faeces [Not Recovered/Not Resolved]
  - Steatorrhoea [Not Recovered/Not Resolved]
  - Product quality issue [Unknown]
  - Flatulence [Not Recovered/Not Resolved]
  - Drug ineffective [Unknown]

NARRATIVE: CASE EVENT DATE: 20180622
